FAERS Safety Report 10736470 (Version 1)
Quarter: 2015Q1

REPORT INFORMATION
  Report Type: Report from Study
  Country: US (occurrence: US)
  Receive Date: 20150126
  Receipt Date: 20150126
  Transmission Date: 20150721
  Serious: Yes (Other)
  Sender: FDA-Public Use
  Company Number: US-AMGEN-USASL2015004665

PATIENT
  Sex: Male
  Weight: 3.63 kg

DRUGS (1)
  1. ENBREL [Suspect]
     Active Substance: ETANERCEPT
     Indication: EXPOSURE DURING PREGNANCY
     Dosage: 5 ML, QWK
     Route: 064

REACTIONS (3)
  - Pyrexia [Unknown]
  - Congenital hydrocephalus [Recovered/Resolved]
  - Arrhythmia neonatal [Unknown]
